FAERS Safety Report 12668410 (Version 3)
Quarter: 2017Q2

REPORT INFORMATION
  Report Type: Spontaneous
  Country: US (occurrence: US)
  Receive Date: 20160819
  Receipt Date: 20170612
  Transmission Date: 20170830
  Serious: Yes (Hospitalization)
  Sender: FDA-Public Use
  Company Number: US-ABBVIE-16P-163-1703872-00

PATIENT
  Age: 72 Year
  Sex: Male
  Weight: 89.89 kg

DRUGS (4)
  1. LUPRON DEPOT [Suspect]
     Active Substance: LEUPROLIDE ACETATE
     Indication: PROSTATE CANCER
     Route: 030
     Dates: start: 20160601, end: 20160601
  2. ERGOCALCIFEROL. [Suspect]
     Active Substance: ERGOCALCIFEROL
     Indication: PRODUCT USED FOR UNKNOWN INDICATION
     Route: 065
  3. PROSTEON [Suspect]
     Active Substance: MINERALS
     Indication: BONE LOSS
     Route: 065
     Dates: start: 20160608, end: 201606
  4. PROLIA [Suspect]
     Active Substance: DENOSUMAB
     Indication: PRODUCT USED FOR UNKNOWN INDICATION
     Route: 058
     Dates: start: 20160601

REACTIONS (18)
  - Stress [Unknown]
  - Myalgia [Unknown]
  - Peripheral swelling [Recovering/Resolving]
  - Pollakiuria [Unknown]
  - Skin fissures [Unknown]
  - Abdominal pain [Recovering/Resolving]
  - Mobility decreased [Recovering/Resolving]
  - Dyspnoea [Unknown]
  - Grip strength decreased [Unknown]
  - Diverticular perforation [Recovering/Resolving]
  - Pain [Unknown]
  - Dysuria [Unknown]
  - Libido disorder [Unknown]
  - Sleep disorder [Unknown]
  - Muscular weakness [Unknown]
  - Arthralgia [Recovering/Resolving]
  - Musculoskeletal disorder [Unknown]
  - Hot flush [Unknown]

NARRATIVE: CASE EVENT DATE: 20160615
